FAERS Safety Report 8401863-5 (Version None)
Quarter: 2012Q2

REPORT INFORMATION
  Report Type: 
  Country: None (occurrence: None)
  Receive Date: 20120601
  Receipt Date: 20120523
  Transmission Date: 20120825
  Serious: Yes (Hospitalization)
  Sender: FDA-Public Use
  Company Number: US-JNJFOC-20120406321

PATIENT
  Sex: Male
  Weight: 79.38 kg

DRUGS (9)
  1. OMEPRAZOLE [Concomitant]
     Indication: GASTRIC DISORDER
     Route: 048
  2. DEPAKOTE [Concomitant]
     Indication: PRODUCT USED FOR UNKNOWN INDICATION
     Route: 065
  3. INVEGA SUSTENNA [Suspect]
     Indication: PRODUCT USED FOR UNKNOWN INDICATION
     Route: 042
     Dates: start: 20111101
  4. AN UNKNOWN MEDICATION [Concomitant]
     Route: 048
  5. UNKNOWN MEDICATION [Concomitant]
     Route: 065
  6. UNKNOWN MEDICATION [Concomitant]
     Indication: PRODUCT USED FOR UNKNOWN INDICATION
     Route: 065
  7. INVEGA SUSTENNA [Suspect]
     Route: 042
     Dates: start: 20110101
  8. AN UNKNOWN MEDICATION [Concomitant]
     Indication: FOOD ALLERGY
     Route: 048
  9. AN UNKNOWN MEDICATION [Concomitant]
     Route: 048

REACTIONS (5)
  - NERVOUS SYSTEM DISORDER [None]
  - INCORRECT ROUTE OF DRUG ADMINISTRATION [None]
  - BODY FAT DISORDER [None]
  - WEIGHT INCREASED [None]
  - ADVERSE DRUG REACTION [None]
